FAERS Safety Report 12705706 (Version 7)
Quarter: 2016Q4

REPORT INFORMATION
  Report Type: Report from Study
  Country: IT (occurrence: IT)
  Receive Date: 20160901
  Receipt Date: 20161220
  Transmission Date: 20170207
  Serious: Yes (Hospitalization)
  Sender: FDA-Public Use
  Company Number: IT-ROCHE-1821666

PATIENT
  Age: 72 Year
  Sex: Male
  Weight: 77 kg

DRUGS (47)
  1. ALLOPURINOL. [Concomitant]
     Active Substance: ALLOPURINOL
     Indication: PROPHYLAXIS
     Route: 065
     Dates: start: 20160726
  2. TORVAST [Concomitant]
     Active Substance: ATORVASTATIN
     Route: 065
     Dates: start: 20160804
  3. SALINE [Concomitant]
     Active Substance: SODIUM CHLORIDE
     Indication: PROPHYLAXIS
     Route: 065
     Dates: start: 20160726, end: 20160803
  4. SALINE [Concomitant]
     Active Substance: SODIUM CHLORIDE
     Indication: PROPHYLAXIS
     Route: 065
     Dates: start: 20160819, end: 20160819
  5. CYCLOPHOSPHAMIDE. [Suspect]
     Active Substance: CYCLOPHOSPHAMIDE
     Indication: NON-HODGKIN^S LYMPHOMA
     Dosage: MOST RECENT DOSE 1477.50 MG WAS ADMINISTERED ON 19/AUG/2016 PRIOR TO EVENTS ONSET.
     Route: 042
     Dates: start: 20160729
  6. VINCRISTINE [Suspect]
     Active Substance: VINCRISTINE
     Indication: NON-HODGKIN^S LYMPHOMA
     Dosage: MOST RECENT DOSE 2 MG WAS ADMINISTERED ON 19/AUG/2016  PRIOR TO EVENTS ONSET.
     Route: 050
     Dates: start: 20160729
  7. PARACETAMOL [Concomitant]
     Active Substance: ACETAMINOPHEN
     Indication: PROPHYLAXIS
     Route: 065
     Dates: start: 20160729, end: 20160729
  8. LIMICAN [Concomitant]
     Active Substance: ALIZAPRIDE HYDROCHLORIDE
     Indication: NAUSEA
     Route: 065
     Dates: start: 20160927, end: 20160927
  9. NIVESTIM [Concomitant]
     Active Substance: FILGRASTIM
     Route: 065
     Dates: start: 20160804
  10. URBASON [Concomitant]
     Active Substance: METHYLPREDNISOLONE
     Route: 065
     Dates: start: 20160730, end: 20160802
  11. LASIX [Concomitant]
     Active Substance: FUROSEMIDE
     Indication: PROPHYLAXIS
     Route: 065
     Dates: start: 20160726, end: 20160804
  12. CARDICOR [Concomitant]
     Active Substance: BISOPROLOL
     Indication: TACHYCARDIA
     Route: 065
     Dates: start: 20160904, end: 20160904
  13. VINCRISTINA [Concomitant]
     Active Substance: VINCRISTINE
     Route: 065
     Dates: start: 20160914, end: 20160914
  14. TORVAST [Concomitant]
     Active Substance: ATORVASTATIN
     Indication: HYPERTRIGLYCERIDAEMIA
     Route: 065
     Dates: end: 20160726
  15. SODIUM BICARBONATE. [Concomitant]
     Active Substance: SODIUM BICARBONATE
     Indication: PROPHYLAXIS
     Route: 065
     Dates: start: 20160726, end: 20160804
  16. PERFALGAN [Concomitant]
     Active Substance: ACETAMINOPHEN
     Indication: PYREXIA
     Route: 065
     Dates: start: 20160905, end: 20160905
  17. DOMPERIDONE [Concomitant]
     Active Substance: DOMPERIDONE
     Indication: PROPHYLAXIS OF NAUSEA AND VOMITING
     Route: 065
     Dates: start: 20160913, end: 20160913
  18. BLOOD TRANSFUSION [Concomitant]
     Active Substance: WHOLE BLOOD
     Indication: ANAEMIA
     Route: 065
     Dates: start: 20160924, end: 20160924
  19. NIVESTIM [Concomitant]
     Active Substance: FILGRASTIM
     Indication: PROPHYLAXIS
     Route: 065
     Dates: start: 20160825, end: 20160826
  20. VENETOCLAX [Suspect]
     Active Substance: VENETOCLAX
     Indication: NON-HODGKIN^S LYMPHOMA
     Dosage: MOST RECENT DOSE 800 MG WAS ADMINISTERED ON 25/AUG/2016 PRIOR TO EVENTS ONSET.
     Route: 048
     Dates: start: 20160801
  21. DOXORUBICIN [Suspect]
     Active Substance: DOXORUBICIN
     Indication: NON-HODGKIN^S LYMPHOMA
     Dosage: MOST RECENT DOSE 98.50 MG WAS ADMINISTERED ON 19/AUG/2016 PRIOR TO EVENTS ONSET.
     Route: 042
     Dates: start: 20160729
  22. AMLODIPINA [Concomitant]
     Active Substance: AMLODIPINE BESYLATE
     Indication: HYPERTENSION
  23. BISOPROLOL [Concomitant]
     Active Substance: BISOPROLOL
     Indication: ATRIAL FIBRILLATION
  24. DEPALGOS [Concomitant]
     Active Substance: ACETAMINOPHEN\OXYCODONE HYDROCHLORIDE
     Indication: PAIN
     Route: 065
     Dates: start: 20160726
  25. ALOXI [Concomitant]
     Active Substance: PALONOSETRON HYDROCHLORIDE
     Indication: PROPHYLAXIS
     Route: 065
     Dates: start: 20160819, end: 20160819
  26. CORDARONE [Concomitant]
     Active Substance: AMIODARONE HYDROCHLORIDE
     Indication: ATRIAL FIBRILLATION
     Route: 065
     Dates: start: 20160905, end: 20160905
  27. NIVESTIM [Concomitant]
     Active Substance: FILGRASTIM
     Indication: NEUTROPENIA
     Route: 065
     Dates: start: 20160828, end: 20160829
  28. PREDNISONE. [Suspect]
     Active Substance: PREDNISONE
     Indication: NON-HODGKIN^S LYMPHOMA
     Dosage: MOST RECENT DOSE 100 MG WAS ADMINISTERED ON 23/AUG/2016 PRIOR TO EVENTS ONSET.
     Route: 048
     Dates: start: 20160819
  29. ALDACTONE (ITALY) [Concomitant]
     Indication: HYPERTENSION
  30. URBASON [Concomitant]
     Active Substance: METHYLPREDNISOLONE
     Indication: PROPHYLAXIS
     Route: 065
     Dates: start: 20160726, end: 20160728
  31. SOLU-MEDROL [Concomitant]
     Active Substance: METHYLPREDNISOLONE SODIUM SUCCINATE
     Indication: PROPHYLAXIS
     Route: 065
     Dates: start: 20160729, end: 20160729
  32. PARACETAMOL [Concomitant]
     Active Substance: ACETAMINOPHEN
     Route: 065
     Dates: start: 20160819, end: 20160819
  33. ZEFFIX [Concomitant]
     Active Substance: LAMIVUDINE
     Indication: PROPHYLAXIS
     Route: 065
     Dates: start: 20160726
  34. ZANTAC [Concomitant]
     Active Substance: RANITIDINE HYDROCHLORIDE
     Indication: PROPHYLAXIS
     Route: 065
     Dates: start: 20160626, end: 20160728
  35. ZELITREX [Concomitant]
     Active Substance: VALACYCLOVIR HYDROCHLORIDE
     Indication: INFECTION PROPHYLAXIS
     Route: 065
     Dates: start: 20160804
  36. TACHIPIRINA [Concomitant]
     Active Substance: ACETAMINOPHEN
     Indication: NECK PAIN
     Route: 065
     Dates: start: 20160918, end: 20160918
  37. TACHIPIRINA [Concomitant]
     Active Substance: ACETAMINOPHEN
     Indication: PAIN
     Route: 065
     Dates: start: 20160922, end: 20160922
  38. ZOFRAN [Concomitant]
     Active Substance: ONDANSETRON HYDROCHLORIDE
     Indication: NAUSEA
     Route: 065
     Dates: start: 20160922, end: 20160922
  39. RITUXIMAB [Suspect]
     Active Substance: RITUXIMAB
     Indication: NON-HODGKIN^S LYMPHOMA
     Dosage: MOST RECENT DOSE 738.75 MG WAS ADMINISTERED ON 19/AUG/2016 PRIOR TO EVENTS ONSET.
     Route: 042
     Dates: start: 20160729
  40. LANSOPRAZOLE. [Concomitant]
     Active Substance: LANSOPRAZOLE
     Indication: PROPHYLAXIS
     Route: 065
     Dates: start: 20160727
  41. RAMIPRIL. [Concomitant]
     Active Substance: RAMIPRIL
     Indication: HYPERTENSION
  42. CLEXANE [Concomitant]
     Active Substance: ENOXAPARIN SODIUM
     Indication: PROPHYLAXIS
     Route: 065
     Dates: start: 20160726
  43. BACTRIM [Concomitant]
     Active Substance: SULFAMETHOXAZOLE\TRIMETHOPRIM
     Indication: INFECTION PROPHYLAXIS
     Route: 065
     Dates: start: 20160804
  44. TRIMETON (ITALY) [Concomitant]
     Indication: PROPHYLAXIS
     Route: 065
     Dates: start: 20160729, end: 20160729
  45. TRIMETON (ITALY) [Concomitant]
     Route: 065
     Dates: start: 20160819, end: 20160819
  46. TACHIPIRINA [Concomitant]
     Active Substance: ACETAMINOPHEN
     Indication: PYREXIA
  47. TALOFEN [Concomitant]
     Active Substance: PROMAZINE HYDROCHLORIDE
     Route: 065
     Dates: start: 20160922, end: 20160922

REACTIONS (3)
  - Diarrhoea [Recovered/Resolved]
  - Vomiting [Recovered/Resolved]
  - Atrial fibrillation [Recovering/Resolving]

NARRATIVE: CASE EVENT DATE: 20160824
